FAERS Safety Report 17277298 (Version 2)
Quarter: 2020Q1

REPORT INFORMATION
  Report Type: Spontaneous
  Country: US (occurrence: US)
  Receive Date: 20200116
  Receipt Date: 20200122
  Transmission Date: 20200409
  Serious: Yes (Death, Hospitalization)
  Sender: FDA-Public Use
  Company Number: US-PFIZER INC-2020018190

PATIENT
  Age: 58 Year
  Sex: Female

DRUGS (4)
  1. KETAMINE HCL [Suspect]
     Active Substance: KETAMINE HYDROCHLORIDE
     Dosage: UNK
     Route: 065
  2. KETAMINE HCL [Suspect]
     Active Substance: KETAMINE HYDROCHLORIDE
     Dosage: UNK (INGESTION)
     Route: 048
  3. SITAGLIPTIN [Suspect]
     Active Substance: SITAGLIPTIN
     Dosage: UNK
     Route: 065
  4. SITAGLIPTIN [Suspect]
     Active Substance: SITAGLIPTIN
     Dosage: UNK (INGESTION)
     Route: 048

REACTIONS (3)
  - Completed suicide [Fatal]
  - Respiratory arrest [Fatal]
  - Cardiac arrest [Fatal]

NARRATIVE: CASE EVENT DATE: 2018
